FAERS Safety Report 7611264-5 (Version None)
Quarter: 2011Q3

REPORT INFORMATION
  Report Type: 
  Country: None (occurrence: None)
  Receive Date: 20110715
  Receipt Date: 20110708
  Transmission Date: 20111222
  Serious: Yes (Hospitalization)
  Sender: FDA-Public Use
  Company Number: JP-PFIZER INC-2011154963

PATIENT
  Sex: Male

DRUGS (1)
  1. ZITHROMAX [Suspect]
     Dosage: UNK
     Route: 048
     Dates: start: 20110513, end: 20110514

REACTIONS (9)
  - DECREASED APPETITE [None]
  - SICK SINUS SYNDROME [None]
  - GAIT DISTURBANCE [None]
  - DYSURIA [None]
  - MUSCULOSKELETAL STIFFNESS [None]
  - URTICARIA [None]
  - VOMITING [None]
  - HYPOAESTHESIA [None]
  - MALAISE [None]
